FAERS Safety Report 8959006 (Version 1)
Quarter: 2012Q4

REPORT INFORMATION
  Report Type: Spontaneous
  Country: GB (occurrence: None)
  Receive Date: 20121128
  Receipt Date: 20121128
  Transmission Date: 20130627
  Serious: Yes (Other)
  Sender: FDA-Public Use
  Company Number: 2012-01699

PATIENT
  Age: 63 Year
  Sex: Male
  Weight: 73 kg

DRUGS (7)
  1. SIMVASTATIN (UNKNOWN) [Suspect]
     Indication: DRUG USE FOR UNKNOWN INDICATION
     Dosage: Unknown (Uniknown, UNK), Unknown
     Dates: start: 20120618, end: 20121023
  2. ASPIRIN [Concomitant]
  3. BECLOMETHASONE DIPROPIONATE+BECLOMETHASONE DIPROPIONATE MONOHYDRATE MICRONISED+BECLOMETHASONE DIPROPIONATE (BECONASE) [Concomitant]
  4. ISOPROPYL MYRISTATE+LIQUID PARAFFIN (DOUBLEBASE) [Concomitant]
  5. SALBUTAMOL [Concomitant]
  6. WARFARIN (WARFARIN SODIUM) [Concomitant]
  7. CODEINE PHOSPHATE+CODEINE PHOSPHATE HEMIHYDRATE+PARACETAMOL (ZAPAIN) [Suspect]

REACTIONS (1)
  - Ejaculation failure [None]
